FAERS Safety Report 16088716 (Version 2)
Quarter: 2019Q4

REPORT INFORMATION
  Report Type: Report from Study
  Country: US (occurrence: US)
  Receive Date: 20190319
  Receipt Date: 20191120
  Transmission Date: 20200122
  Serious: Yes (Other)
  Sender: FDA-Public Use
  Company Number: US-UCBSA-2019007378

PATIENT
  Age: 47 Year
  Sex: Female
  Weight: 111 kg

DRUGS (1)
  1. CERTOLIZUMAB PEGOL [Suspect]
     Active Substance: CERTOLIZUMAB PEGOL
     Indication: RHEUMATOID ARTHRITIS
     Dosage: 400 MG, EV 4 WEEKS

REACTIONS (4)
  - Injection site erythema [Not Recovered/Not Resolved]
  - Headache [Not Recovered/Not Resolved]
  - Influenza like illness [Recovered/Resolved]
  - Injection site swelling [Not Recovered/Not Resolved]

NARRATIVE: CASE EVENT DATE: 2016
